FAERS Safety Report 7233393-0 (Version None)
Quarter: 2011Q1

REPORT INFORMATION
  Report Type: 
  Country: None (occurrence: None)
  Receive Date: 20110119
  Receipt Date: 20110114
  Transmission Date: 20110831
  Serious: Yes (Hospitalization)
  Sender: FDA-Public Use
  Company Number: FR-ROCHE-753597

PATIENT
  Sex: Male

DRUGS (2)
  1. RIVOTRIL [Suspect]
     Dosage: DOSE REPORTED AS 4 FLASKS
     Route: 048
  2. XANAX [Suspect]
     Dosage: DOSE REPORTED AS 1 BLISTER.
     Route: 048

REACTIONS (1)
  - POISONING [None]
